FAERS Safety Report 17123791 (Version 4)
Quarter: 2020Q1

REPORT INFORMATION
  Report Type: Spontaneous
  Country: US (occurrence: US)
  Receive Date: 20191206
  Receipt Date: 20200122
  Transmission Date: 20200409
  Serious: Yes (Hospitalization)
  Sender: FDA-Public Use
  Company Number: US-STRONGBRIDGE BIOPHARMA-2019-STR-000321

PATIENT
  Sex: Male

DRUGS (1)
  1. KEVEYIS [Suspect]
     Active Substance: DICHLORPHENAMIDE
     Indication: FAMILIAL PERIODIC PARALYSIS
     Dosage: 50 MG, BID
     Route: 048
     Dates: start: 20191130

REACTIONS (7)
  - Malaise [Unknown]
  - Crohn^s disease [Recovered/Resolved]
  - Nasopharyngitis [Unknown]
  - Balance disorder [Recovering/Resolving]
  - Nausea [Recovering/Resolving]
  - Chills [Unknown]
  - Product dose omission [Unknown]
